FAERS Safety Report 5588463-X (Version None)
Quarter: 2008Q1

REPORT INFORMATION
  Report Type: 
  Country: None (occurrence: None)
  Receive Date: 20080111
  Receipt Date: 20071228
  Transmission Date: 20080703
  Serious: Yes (Hospitalization, Other)
  Sender: FDA-Public Use
  Company Number: JP-ELI_LILLY_AND_COMPANY-JP200709001729

PATIENT
  Sex: Male
  Weight: 55 kg

DRUGS (3)
  1. GEMZAR [Suspect]
     Indication: LUNG CARCINOMA CELL TYPE UNSPECIFIED RECURRENT
     Dosage: 1200 MG, OTHER
     Route: 042
     Dates: start: 20070111, end: 20070607
  2. LENDORMIN [Concomitant]
     Indication: INSOMNIA
     Dosage: 0.25 MG, DAILY (1/D)
     Route: 048
     Dates: start: 20060626
  3. MAGNESIUM OXIDE [Concomitant]
     Indication: CONSTIPATION
     Dosage: 0.5 G, 3/D
     Route: 048
     Dates: start: 20060626

REACTIONS (9)
  - BENIGN PROSTATIC HYPERPLASIA [None]
  - CATARACT [None]
  - DYSPNOEA [None]
  - HAEMOGLOBIN DECREASED [None]
  - PERICARDIAL EFFUSION [None]
  - PYREXIA [None]
  - RASH [None]
  - RENAL FAILURE [None]
  - URTICARIA [None]
